FAERS Safety Report 16781175 (Version 1)
Quarter: 2019Q3

REPORT INFORMATION
  Report Type: Spontaneous
  Country: US (occurrence: US)
  Receive Date: 20190906
  Receipt Date: 20190906
  Transmission Date: 20191005
  Serious: No
  Sender: FDA-Public Use
  Company Number: US-SA-2019SA246949

PATIENT
  Age: 79 Year
  Sex: Female
  Weight: 68.04 kg

DRUGS (18)
  1. VITAMINE B12 [Concomitant]
     Active Substance: CYANOCOBALAMIN
  2. EZETIMIBE. [Concomitant]
     Active Substance: EZETIMIBE
  3. NIFEDIPINE. [Concomitant]
     Active Substance: NIFEDIPINE
  4. LEVOTHYROXINE SODIUM. [Concomitant]
     Active Substance: LEVOTHYROXINE SODIUM
  5. ALENDRONATE SODIUM. [Concomitant]
     Active Substance: ALENDRONATE SODIUM
  6. DIAZEPAM. [Concomitant]
     Active Substance: DIAZEPAM
  7. JANUMET [Concomitant]
     Active Substance: METFORMIN HYDROCHLORIDE\SITAGLIPTIN PHOSPHATE
  8. FLUOCINONIDE. [Concomitant]
     Active Substance: FLUOCINONIDE
  9. HYDROCHLOROTHIAZIDE. [Concomitant]
     Active Substance: HYDROCHLOROTHIAZIDE
  10. VITAMIN D3 [Concomitant]
     Active Substance: CHOLECALCIFEROL
  11. STELARA [Concomitant]
     Active Substance: USTEKINUMAB
  12. SIMVASTATIN. [Concomitant]
     Active Substance: SIMVASTATIN
  13. MYCOPHENOLATE MOFETIL. [Concomitant]
     Active Substance: MYCOPHENOLATE MOFETIL
  14. HYDROXYZINE [Concomitant]
     Active Substance: HYDROXYZINE HYDROCHLORIDE
  15. DUPIXENT [Suspect]
     Active Substance: DUPILUMAB
     Indication: PSORIASIS
     Dosage: 300 MG, QOW
     Route: 058
     Dates: start: 20190828
  16. CYCLOSPORINE. [Concomitant]
     Active Substance: CYCLOSPORINE
  17. FENOFIBRATE. [Concomitant]
     Active Substance: FENOFIBRATE
  18. PANTOPRAZOLE SODIUM. [Concomitant]
     Active Substance: PANTOPRAZOLE SODIUM

REACTIONS (4)
  - Swelling [Unknown]
  - Product use in unapproved indication [Unknown]
  - Headache [Unknown]
  - Pruritus [Unknown]

NARRATIVE: CASE EVENT DATE: 20190829
